FAERS Safety Report 5988415-1 (Version None)
Quarter: 2008Q4

REPORT INFORMATION
  Report Type: 
  Country: None (occurrence: None)
  Receive Date: 20081204
  Receipt Date: 20081120
  Transmission Date: 20090506
  Serious: Yes (Death, Other)
  Sender: FDA-Public Use
  Company Number: POMP-1000402

PATIENT
  Age: 1 Year
  Sex: Male

DRUGS (1)
  1. MYOZYME [Suspect]
     Indication: GLYCOGEN STORAGE DISEASE TYPE II
     Dosage: INTRAVENOUS
     Route: 042

REACTIONS (3)
  - CARDIOMEGALY [None]
  - HYPOTONIA [None]
  - NO THERAPEUTIC RESPONSE [None]
